FAERS Safety Report 4532397-6 (Version None)
Quarter: 2004Q4

REPORT INFORMATION
  Report Type: 
  Country: None (occurrence: None)
  Receive Date: 20041217
  Receipt Date: 20041013
  Transmission Date: 20050328
  Serious: Yes (Disabling, Other)
  Sender: FDA-Public Use
  Company Number: 2004239035US

PATIENT
  Sex: Female

DRUGS (1)
  1. CELEBREX [Suspect]

REACTIONS (9)
  - ABASIA [None]
  - ATRIAL FIBRILLATION [None]
  - DYSPNOEA [None]
  - IRRITABILITY [None]
  - OEDEMA PERIPHERAL [None]
  - PALPITATIONS [None]
  - RASH [None]
  - SKIN DISCOLOURATION [None]
  - TREMOR [None]
